FAERS Safety Report 9397921 (Version 1)
Quarter: 2013Q3

REPORT INFORMATION
  Report Type: Spontaneous
  Country: JP (occurrence: None)
  Receive Date: 20130709
  Receipt Date: 20130709
  Transmission Date: 20140515
  Serious: Yes (Hospitalization, Other)
  Sender: FDA-Public Use
  Company Number: JP-ALKEM-000103

PATIENT
  Age: 54 Year
  Sex: Male

DRUGS (3)
  1. LAMOTRIGINE [Suspect]
     Indication: BIPOLAR I DISORDER
     Dosage: 1.0DAYS
  2. SERTRALINE [Concomitant]
  3. LITHIUM [Concomitant]

REACTIONS (6)
  - Neuroleptic malignant syndrome [None]
  - Hyperhidrosis [None]
  - Muscle rigidity [None]
  - Dysphagia [None]
  - Diarrhoea [None]
  - Aspartate aminotransferase increased [None]
